FAERS Safety Report 5121729-6 (Version None)
Quarter: 2006Q4

REPORT INFORMATION
  Report Type: 
  Country: None (occurrence: None)
  Receive Date: 20061003
  Receipt Date: 20060920
  Transmission Date: 20070319
  Serious: Yes (Other)
  Sender: FDA-Public Use
  Company Number: 230252

PATIENT
  Age: 50 Year
  Sex: Female

DRUGS (2)
  1. MABTHERA(RITUXIMAB) CONC FOR SOLUTION FOR INFUSION [Suspect]
     Indication: POLYARTHRITIS
     Dosage: 1 G, Q2W
  2. RIFATER [Concomitant]

REACTIONS (1)
  - DELIRIUM [None]
